FAERS Safety Report 5468755-5 (Version None)
Quarter: 2007Q3

REPORT INFORMATION
  Report Type: 
  Country: None (occurrence: None)
  Receive Date: 20070820
  Receipt Date: 20070425
  Transmission Date: 20080115
  Serious: No
  Sender: FDA-Public Use
  Company Number: WAES 0704USA01453

PATIENT
  Age: 30 Year
  Sex: Male
  Weight: 94.8018 kg

DRUGS (3)
  1. JANUVIA [Suspect]
     Dosage: 100 MG/DAILY/PO; PO
     Route: 048
     Dates: start: 20070315
  2. ALLOPURINOL [Concomitant]
  3. METFORMIN [Concomitant]

REACTIONS (2)
  - PRURITUS [None]
  - SKIN BURNING SENSATION [None]
